FAERS Safety Report 5737452-0 (Version None)
Quarter: 2008Q2

REPORT INFORMATION
  Report Type: 
  Country: None (occurrence: None)
  Receive Date: 20080514
  Receipt Date: 20080409
  Transmission Date: 20081010
  Serious: Yes (Life-Threatening)
  Sender: FDA-Public Use
  Company Number: US-BRISTOL-MYERS SQUIBB COMPANY-14116339

PATIENT
  Age: 49 Year
  Sex: Female

DRUGS (3)
  1. IXEMPRA KIT [Suspect]
     Indication: BREAST CANCER
     Route: 042
     Dates: start: 20071129, end: 20080219
  2. AVASTIN [Concomitant]
     Dates: start: 20060601
  3. XELODA [Concomitant]
     Dates: start: 20071129

REACTIONS (1)
  - HYPERSENSITIVITY [None]
